FAERS Safety Report 24347880 (Version 1)
Quarter: 2024Q3

REPORT INFORMATION
  Report Type: Report from Study
  Country: US (occurrence: US)
  Receive Date: 20240922
  Receipt Date: 20240922
  Transmission Date: 20241017
  Serious: Yes (Hospitalization)
  Sender: ABBVIE
  Company Number: US-ABBVIE-5920783

PATIENT
  Sex: Male

DRUGS (3)
  1. HUMIRA [Suspect]
     Active Substance: ADALIMUMAB
     Indication: Crohn^s disease
     Dosage: CITRATE FREE 40 MG (1 INJECTOR) SUBCUTANEOUSLY EVERY 2 WEEKS STARTING AFTER LOADING DOSE.
     Route: 058
  2. TYLENOL [Concomitant]
     Active Substance: ACETAMINOPHEN
     Indication: Product used for unknown indication
  3. BUDESONIDE [Concomitant]
     Active Substance: BUDESONIDE
     Indication: Product used for unknown indication

REACTIONS (8)
  - Constipation [Unknown]
  - Mouth ulceration [Unknown]
  - Myalgia [Unknown]
  - Weight decreased [Unknown]
  - Diarrhoea [Unknown]
  - Pyrexia [Unknown]
  - Fatigue [Unknown]
  - Arthralgia [Unknown]
